FAERS Safety Report 18397923 (Version 1)
Quarter: 2020Q4

REPORT INFORMATION
  Report Type: Spontaneous
  Country: CN (occurrence: CN)
  Receive Date: 20201019
  Receipt Date: 20201019
  Transmission Date: 20210114
  Serious: Yes (Death, Other)
  Sender: FDA-Public Use
  Company Number: CN-STRIDES ARCOLAB LIMITED-2020SP012311

PATIENT
  Age: 25 Year
  Sex: Female

DRUGS (10)
  1. IMIPENEM AND CILASTATIN [Suspect]
     Active Substance: CILASTATIN SODIUM\IMIPENEM
     Indication: INFECTION
  2. POSACONAZOLE [Concomitant]
     Active Substance: POSACONAZOLE
     Indication: ANTIFUNGAL PROPHYLAXIS
     Dosage: UNK
     Route: 065
     Dates: start: 2019
  3. SULPERAZONE [Suspect]
     Active Substance: CEFOPERAZONE SODIUM\SULBACTAM SODIUM
     Indication: PYREXIA
     Dosage: 3 GRAM, EVERY 12 HRS
     Route: 065
     Dates: start: 2019
  4. IMIPENEM AND CILASTATIN [Suspect]
     Active Substance: CILASTATIN SODIUM\IMIPENEM
     Indication: PYREXIA
     Dosage: 1 GRAM, EVERY 6 HRS
     Route: 065
     Dates: start: 2019
  5. VANCOMYCIN [Suspect]
     Active Substance: VANCOMYCIN
     Indication: DIARRHOEA
  6. INDOMETACIN [Concomitant]
     Active Substance: INDOMETHACIN
     Indication: PYREXIA
     Dosage: UNK
     Route: 065
     Dates: start: 2019
  7. VANCOMYCIN [Suspect]
     Active Substance: VANCOMYCIN
     Indication: INFECTION
  8. VANCOMYCIN [Suspect]
     Active Substance: VANCOMYCIN
     Indication: PYREXIA
     Dosage: 1 GRAM, EVERY 12 HRS
     Route: 065
     Dates: start: 2019
  9. IMIPENEM AND CILASTATIN [Suspect]
     Active Substance: CILASTATIN SODIUM\IMIPENEM
     Indication: DIARRHOEA
     Dosage: 2 GRAM
     Route: 065
     Dates: start: 2019
  10. LEVOFLOXACIN. [Suspect]
     Active Substance: LEVOFLOXACIN
     Indication: PYREXIA
     Dosage: 0.5 GRAM, EVERY DAY
     Route: 065
     Dates: start: 2019

REACTIONS (7)
  - Gastrointestinal infection [Unknown]
  - Sepsis [Fatal]
  - Pneumonia klebsiella [Fatal]
  - Condition aggravated [Unknown]
  - Urinary tract infection [Unknown]
  - Diarrhoea [Unknown]
  - Drug resistance [Unknown]

NARRATIVE: CASE EVENT DATE: 2019
